FAERS Safety Report 9384334 (Version 1)
Quarter: 2013Q3

REPORT INFORMATION
  Report Type: Report from Study
  Country: MY (occurrence: MY)
  Receive Date: 20130705
  Receipt Date: 20130705
  Transmission Date: 20140515
  Serious: Yes (Other)
  Sender: FDA-Public Use
  Company Number: PHHY2013MY069005

PATIENT
  Sex: 0

DRUGS (2)
  1. GLIVEC [Suspect]
     Indication: GASTROINTESTINAL STROMAL TUMOUR
     Dosage: 400 MG, UNK
     Dates: end: 20130626
  2. GLIVEC [Suspect]
     Dosage: 300 MG, QD
     Dates: start: 20130628

REACTIONS (1)
  - Post procedural fistula [Unknown]
